FAERS Safety Report 23314661 (Version 1)
Quarter: 2023Q4

REPORT INFORMATION
  Report Type: Spontaneous
  Country: FR (occurrence: FR)
  Receive Date: 20231219
  Receipt Date: 20231219
  Transmission Date: 20240110
  Serious: Yes (Hospitalization)
  Sender: FDA-Public Use
  Company Number: FR-AFSSAPS-CN2023000746

PATIENT
  Age: 72 Year
  Sex: Female
  Weight: 62 kg

DRUGS (14)
  1. VALACYCLOVIR [Suspect]
     Active Substance: VALACYCLOVIR HYDROCHLORIDE
     Indication: Antiviral prophylaxis
     Dosage: 500 MILLIGRAM, BID, MORNING AND EVENING
     Route: 048
     Dates: start: 20230624, end: 20230810
  2. PANTOPRAZOLE [Suspect]
     Active Substance: PANTOPRAZOLE
     Indication: Dyspepsia
     Dosage: 40 MILLIGRAM, DAILY, IN THE EVENING
     Route: 048
     Dates: start: 2017, end: 20230810
  3. RITUXIMAB [Suspect]
     Active Substance: RITUXIMAB
     Indication: Acquired haemophilia
     Dosage: 600 MILLIGRAM, 1DOSE/1CYCLIC, C4
     Route: 040
     Dates: start: 20230623, end: 20230623
  4. RITUXIMAB [Suspect]
     Active Substance: RITUXIMAB
     Dosage: 600 MILLIGRAM, 1DOSE/1CYCLIC
     Route: 040
     Dates: start: 20230607, end: 20230607
  5. RITUXIMAB [Suspect]
     Active Substance: RITUXIMAB
     Dosage: 600 MILLIGRAM, 1DOSE/1CYCLIC, C1
     Route: 040
     Dates: start: 20230531, end: 20230531
  6. RITUXIMAB [Suspect]
     Active Substance: RITUXIMAB
     Dosage: 600 MILLIGRAM, 1DOSE/1CYCLIC, C3
     Route: 040
     Dates: start: 20230615, end: 20230615
  7. BACTRIM [Suspect]
     Active Substance: SULFAMETHOXAZOLE\TRIMETHOPRIM
     Indication: Antiviral prophylaxis
     Dosage: 1 DOSAGE FORM, DAILY, 400MG/80MG IN THE MORNING
     Route: 048
     Dates: start: 20230531, end: 20230810
  8. ACETAMINOPHEN\CODEINE PHOSPHATE [Concomitant]
     Active Substance: ACETAMINOPHEN\CODEINE PHOSPHATE
     Indication: Pain
     Dosage: 1 DOSAGE FORM, TID, IF NECESSARY
     Route: 048
  9. POTASSIUM CHLORIDE [Concomitant]
     Active Substance: POTASSIUM CHLORIDE
     Indication: Hypokalaemia
     Dosage: 600 MILLIGRAM, BID, 1 CAPSULE MORNING AND EVENING
     Route: 048
  10. ACETAMINOPHEN [Concomitant]
     Active Substance: ACETAMINOPHEN
     Indication: Pain
     Dosage: 500 MILLIGRAM PER GRAM, QID
     Route: 048
  11. ATORVASTATIN [Concomitant]
     Active Substance: ATORVASTATIN
     Indication: Cardiomyopathy
     Dosage: 10 MILLIGRAM, DAILY,  IN THE EVENING
     Route: 048
  12. GABAPENTIN [Concomitant]
     Active Substance: GABAPENTIN
     Indication: Post herpetic neuralgia
     Dosage: 200 MILLIGRAM, TID, ORNING, NOON AND EVENING
     Route: 048
  13. PREDNISONE [Concomitant]
     Active Substance: PREDNISONE
     Indication: Acquired haemophilia
     Dosage: 60 MILLIGRAM, DAILY, IN THE MORNING
     Route: 048
  14. BISOPROLOL [Concomitant]
     Active Substance: BISOPROLOL\BISOPROLOL FUMARATE
     Indication: Cardiomyopathy
     Dosage: 2.5 MILLIGRAM, DAILY, IN THE MORNING
     Route: 048

REACTIONS (2)
  - Thrombocytopenia [Recovering/Resolving]
  - Agranulocytosis [Recovered/Resolved]

NARRATIVE: CASE EVENT DATE: 20230808
